FAERS Safety Report 4325497-7 (Version None)
Quarter: 2004Q1

REPORT INFORMATION
  Report Type: 
  Country: None (occurrence: None)
  Receive Date: 20040324
  Receipt Date: 20040312
  Transmission Date: 20041129
  Serious: Yes (Death)
  Sender: FDA-Public Use
  Company Number: 2004194595FR

PATIENT
  Age: 71 Year
  Sex: Female
  Weight: 60 kg

DRUGS (3)
  1. CELEBREX [Suspect]
     Indication: PSORIATIC ARTHROPATHY
     Dosage: 200 MG, QD, ORAL
     Route: 048
     Dates: start: 20020614
  2. PLAQUENIL [Suspect]
     Dates: end: 20020701
  3. DI-ANTALVIC (DEXTROPROPYPHENE HYDROCHLORIDE) [Concomitant]

REACTIONS (2)
  - AORTIC ANEURYSM RUPTURE [None]
  - SUDDEN DEATH [None]
